FAERS Safety Report 25729346 (Version 1)
Quarter: 2025Q3

REPORT INFORMATION
  Report Type: Spontaneous
  Country: US (occurrence: US)
  Receive Date: 20250827
  Receipt Date: 20250827
  Transmission Date: 20251021
  Serious: No
  Sender: AMGEN
  Company Number: US-AMGEN-USASP2025167476

PATIENT
  Age: 86 Year
  Sex: Female

DRUGS (3)
  1. XGEVA [Suspect]
     Active Substance: DENOSUMAB
     Indication: Product used for unknown indication
     Route: 065
  2. XERMELO [Suspect]
     Active Substance: TELOTRISTAT ETHYL
     Indication: Carcinoid syndrome
     Dosage: 250 MILLIGRAM, TID
     Route: 048
     Dates: start: 20200719
  3. XERMELO [Suspect]
     Active Substance: TELOTRISTAT ETHYL
     Dosage: 250 MILLIGRAM, TID
     Route: 048

REACTIONS (4)
  - Road traffic accident [Unknown]
  - Adverse drug reaction [Unknown]
  - Expired product administered [Unknown]
  - Limb injury [Unknown]
